FAERS Safety Report 12441328 (Version 1)
Quarter: 2016Q2

REPORT INFORMATION
  Report Type: Spontaneous
  Country: US (occurrence: US)
  Receive Date: 20160607
  Receipt Date: 20160607
  Transmission Date: 20160815
  Serious: Yes (Other)
  Sender: FDA-Public Use
  Company Number: US-JNJCP-30000339810

PATIENT
  Age: 62 Year
  Sex: Female
  Weight: 84 kg

DRUGS (2)
  1. ROC MULTI CORREXION 5 IN 1 CHEST, NECK AND FACE SUNSCREEN BROAD SPECTRUM SPF 30 [Suspect]
     Active Substance: AVOBENZONE\HOMOSALATE\OCTISALATE\OCTOCRYLENE
     Indication: DRY SKIN PROPHYLAXIS
     Dosage: DIME SIZE AMOUNT, ONCE PER DAY
     Route: 061
     Dates: start: 20160520, end: 20160520
  2. LISINOPRIL. [Concomitant]
     Active Substance: LISINOPRIL
     Indication: HYPERTENSION
     Dosage: ONE TABLET, SINCE TWO MONTHS

REACTIONS (2)
  - Hypersensitivity [Recovering/Resolving]
  - Skin exfoliation [None]

NARRATIVE: CASE EVENT DATE: 20160520
